FAERS Safety Report 6116095-3 (Version None)
Quarter: 2009Q1

REPORT INFORMATION
  Report Type: 
  Country: None (occurrence: None)
  Receive Date: 20090314
  Receipt Date: 20081204
  Transmission Date: 20090719
  Serious: No
  Sender: FDA-Public Use
  Company Number: US-ABBOTT-08P-163-0485891-00

PATIENT
  Age: 34 Year
  Sex: Female
  Weight: 145.28 kg

DRUGS (5)
  1. HUMIRA [Suspect]
     Indication: PSORIASIS
     Route: 058
     Dates: start: 20080402, end: 20080402
  2. HUMIRA [Suspect]
     Route: 058
     Dates: start: 20080409, end: 20080409
  3. HUMIRA [Suspect]
     Route: 058
     Dates: start: 20080423, end: 20080915
  4. CALCIPOTRIENE [Concomitant]
     Indication: DRUG USE FOR UNKNOWN INDICATION
     Route: 061
  5. CLOXACILLIN SODIUM [Concomitant]
     Indication: DRUG USE FOR UNKNOWN INDICATION
     Route: 061

REACTIONS (4)
  - ARTHRALGIA [None]
  - DEPRESSION [None]
  - PSORIASIS [None]
  - TUBERCULOSIS [None]
